FAERS Safety Report 15291372 (Version 1)
Quarter: 2018Q3

REPORT INFORMATION
  Report Type: Spontaneous
  Country: CA (occurrence: CA)
  Receive Date: 20180817
  Receipt Date: 20180817
  Transmission Date: 20181010
  Serious: Yes (Hospitalization, Other)
  Sender: FDA-Public Use
  Company Number: CA-PFIZER INC-2018312889

PATIENT
  Age: 68 Year
  Sex: Female

DRUGS (2)
  1. PREDNISONE. [Concomitant]
     Active Substance: PREDNISONE
     Dosage: 3 MG, DAILY
  2. SULFASALAZINE. [Suspect]
     Active Substance: SULFASALAZINE
     Dosage: UNK

REACTIONS (9)
  - Hypertension [Unknown]
  - Blood cholesterol increased [Not Recovered/Not Resolved]
  - Infection [Unknown]
  - Diverticulitis [Unknown]
  - Joint swelling [Unknown]
  - Arthralgia [Unknown]
  - Fungal infection [Not Recovered/Not Resolved]
  - Renal impairment [Unknown]
  - Immune system disorder [Unknown]
